FAERS Safety Report 9246266 (Version 1)
Quarter: 2013Q2

REPORT INFORMATION
  Report Type: Spontaneous
  Country: CA (occurrence: CA)
  Receive Date: 20130422
  Receipt Date: 20130422
  Transmission Date: 20140414
  Serious: Yes (Other)
  Sender: FDA-Public Use
  Company Number: CA-ELI_LILLY_AND_COMPANY-CA201304004132

PATIENT
  Age: 64 Year
  Sex: Female

DRUGS (17)
  1. FORTEO [Suspect]
     Indication: OSTEOPOROSIS
     Dosage: 20 UG, QD
     Route: 058
     Dates: start: 20120613, end: 20121231
  2. FORTEO [Suspect]
     Dosage: 20 UG, QD
     Route: 058
     Dates: start: 201301
  3. ELAVIL [Concomitant]
  4. PANTOPRAZOLE [Concomitant]
  5. VENLAFAXINE [Concomitant]
  6. D-TABS [Concomitant]
  7. AMLODIPINE [Concomitant]
  8. EUROCAL [Concomitant]
  9. EUROFOLIC [Concomitant]
  10. HYDROXYCHLOROQUINE [Concomitant]
  11. PREDNISONE [Concomitant]
  12. ATASOL                             /00020001/ [Concomitant]
  13. METHOTREXATE [Concomitant]
  14. ENBREL [Concomitant]
  15. HYDROMORPH CONTIN [Concomitant]
  16. CLONAZEPAN [Concomitant]
  17. GRAVOL [Concomitant]

REACTIONS (2)
  - Suicidal ideation [Recovering/Resolving]
  - Back pain [Not Recovered/Not Resolved]
